FAERS Safety Report 21031256 (Version 1)
Quarter: 2022Q3

REPORT INFORMATION
  Report Type: Spontaneous
  Country: US (occurrence: None)
  Receive Date: 20220701
  Receipt Date: 20220701
  Transmission Date: 20221027
  Serious: No
  Sender: FDA-Public Use
  Company Number: US-ROCHE-3018003

PATIENT
  Age: 61 Year
  Sex: Female
  Weight: 54.480 kg

DRUGS (6)
  1. ACTEMRA [Suspect]
     Active Substance: TOCILIZUMAB
     Indication: Giant cell arteritis
     Dosage: EVERY WEEK ON SUNDAY
     Route: 058
     Dates: start: 20190101
  2. ACTEMRA [Suspect]
     Active Substance: TOCILIZUMAB
  3. ACTEMRA [Suspect]
     Active Substance: TOCILIZUMAB
  4. ACTEMRA [Suspect]
     Active Substance: TOCILIZUMAB
     Dosage: EVERY WEEK ON SUNDAY
     Route: 058
     Dates: start: 2019
  5. ACTEMRA [Suspect]
     Active Substance: TOCILIZUMAB
  6. ACTEMRA [Suspect]
     Active Substance: TOCILIZUMAB

REACTIONS (3)
  - Product dose omission issue [Unknown]
  - Syringe issue [Unknown]
  - No adverse event [Unknown]

NARRATIVE: CASE EVENT DATE: 20210101
